FAERS Safety Report 11328196 (Version 2)
Quarter: 2019Q2

REPORT INFORMATION
  Report Type: Spontaneous
  Country: FR (occurrence: FR)
  Receive Date: 20150731
  Receipt Date: 20190403
  Transmission Date: 20190711
  Serious: Yes (Hospitalization)
  Sender: FDA-Public Use
  Company Number: FR-SEATTLE GENETICS-2015SGN01251

PATIENT
  Age: 44 Year
  Sex: Female
  Weight: 67 kg

DRUGS (4)
  1. ADCETRIS [Suspect]
     Active Substance: BRENTUXIMAB VEDOTIN
     Indication: T-CELL LYMPHOMA
     Dosage: 1.8 MILLIGRAM/KILOGRAM
     Route: 042
     Dates: start: 20150403
  2. DOXORUBICIN [Suspect]
     Active Substance: DOXORUBICIN
     Indication: T-CELL LYMPHOMA
     Dosage: UNK
     Route: 042
     Dates: start: 201406
  3. CYCLOPHOSPHAMIDE. [Concomitant]
     Active Substance: CYCLOPHOSPHAMIDE
     Indication: T-CELL LYMPHOMA
     Dosage: UNK
     Route: 042
     Dates: start: 201406, end: 20141127
  4. PREDNISONE. [Concomitant]
     Active Substance: PREDNISONE
     Indication: T-CELL LYMPHOMA
     Dosage: UNK
     Route: 065
     Dates: start: 201406, end: 20141127

REACTIONS (3)
  - Ventricular hypokinesia [Not Recovered/Not Resolved]
  - Ejection fraction decreased [Not Recovered/Not Resolved]
  - Cardiomyopathy [Not Recovered/Not Resolved]

NARRATIVE: CASE EVENT DATE: 20150604
